FAERS Safety Report 21967566 (Version 1)
Quarter: 2023Q1

REPORT INFORMATION
  Report Type: Spontaneous
  Country: US (occurrence: None)
  Receive Date: 20230206
  Receipt Date: 20230206
  Transmission Date: 20230417
  Serious: Yes (Disabling, Other)
  Sender: FDA-Public Use
  Company Number: None

PATIENT
  Age: 58 Year
  Sex: Female
  Weight: 60.75 kg

DRUGS (2)
  1. ZEPZELCA [Suspect]
     Active Substance: LURBINECTEDIN
     Indication: Neoplasm malignant
     Dosage: OTHER STRENGTH : 5.7MG INFUSION;?OTHER QUANTITY : 1 INFUSION;?OTHER FREQUENCY : EVERY 21 DAYS;?
     Route: 042
     Dates: start: 20221214, end: 20221214
  2. MOTRIN [Concomitant]
     Active Substance: IBUPROFEN

REACTIONS (8)
  - Pain in extremity [None]
  - Contusion [None]
  - Hypoaesthesia [None]
  - Hypoaesthesia [None]
  - Impaired driving ability [None]
  - Neuralgia [None]
  - Contusion [None]
  - Disability [None]

NARRATIVE: CASE EVENT DATE: 20221214
